FAERS Safety Report 7802831-4 (Version None)
Quarter: 2011Q4

REPORT INFORMATION
  Report Type: 
  Country: None (occurrence: None)
  Receive Date: 20111007
  Receipt Date: 20110929
  Transmission Date: 20120403
  Serious: Yes (Hospitalization, Other)
  Sender: FDA-Public Use
  Company Number: US-MERCK-1103USA02677

PATIENT
  Age: 57 Year
  Sex: Female
  Weight: 74 kg

DRUGS (6)
  1. ALENDRONATE SODIUM [Suspect]
     Route: 048
     Dates: start: 20081221, end: 20090922
  2. FOSAMAX [Suspect]
     Indication: OSTEOPOROSIS
     Route: 048
     Dates: start: 19950101, end: 20091201
  3. STROVITE [Concomitant]
     Route: 048
  4. FOSAMAX [Suspect]
     Indication: OSTEOPENIA
     Route: 048
     Dates: start: 19950101, end: 20091201
  5. HORMONES (UNSPECIFIED) [Concomitant]
     Route: 065
     Dates: start: 19900101, end: 19950101
  6. SELECTIVE ESTROGEN RECEPTOR MODULATOR (UNSPECIFIED) [Concomitant]
     Route: 065
     Dates: start: 19950101, end: 20010101

REACTIONS (35)
  - VITAMIN D DECREASED [None]
  - RENAL CYST [None]
  - DYSPNOEA EXERTIONAL [None]
  - IMPAIRED HEALING [None]
  - FALL [None]
  - HEADACHE [None]
  - PLEURAL EFFUSION [None]
  - WEIGHT INCREASED [None]
  - TENDONITIS [None]
  - HYPERTENSION [None]
  - METASTATIC NEOPLASM [None]
  - LOW TURNOVER OSTEOPATHY [None]
  - PULMONARY ALVEOLAR HAEMORRHAGE [None]
  - FATIGUE [None]
  - ANAEMIA POSTOPERATIVE [None]
  - PNEUMONIA [None]
  - FOOT FRACTURE [None]
  - HYPERLIPIDAEMIA [None]
  - LUNG NEOPLASM [None]
  - BURSITIS [None]
  - GAIT DISTURBANCE [None]
  - DEPRESSION [None]
  - FEMUR FRACTURE [None]
  - OBESITY [None]
  - URINARY INCONTINENCE [None]
  - SINUSITIS [None]
  - HYPERCHOLESTEROLAEMIA [None]
  - ANXIETY [None]
  - ORGANISING PNEUMONIA [None]
  - PAIN IN EXTREMITY [None]
  - SLEEP APNOEA SYNDROME [None]
  - HYPOAESTHESIA [None]
  - LUNG DISORDER [None]
  - SWELLING [None]
  - PYREXIA [None]
